FAERS Safety Report 20258007 (Version 3)
Quarter: 2022Q2

REPORT INFORMATION
  Report Type: Report from Study
  Country: CN (occurrence: CN)
  Receive Date: 20211230
  Receipt Date: 20220426
  Transmission Date: 20220720
  Serious: Yes (Hospitalization)
  Sender: FDA-Public Use
  Company Number: CN-JNJFOC-20211201987

PATIENT
  Age: 64 Year
  Sex: Female
  Weight: 55.5 kg

DRUGS (9)
  1. AMIVANTAMAB [Suspect]
     Active Substance: AMIVANTAMAB
     Indication: Non-small cell lung cancer metastatic
     Dosage: D1
     Route: 042
     Dates: start: 20211025
  2. AMIVANTAMAB [Suspect]
     Active Substance: AMIVANTAMAB
     Dosage: D2
     Route: 042
  3. AMIVANTAMAB [Suspect]
     Active Substance: AMIVANTAMAB
     Dosage: D8/D15/D22
     Route: 042
  4. AMIVANTAMAB [Suspect]
     Active Substance: AMIVANTAMAB
     Route: 042
     Dates: start: 20211025, end: 20211116
  5. ESTAZOLAM [Concomitant]
     Active Substance: ESTAZOLAM
     Indication: Sleep disorder
     Dosage: ONCE
     Route: 048
     Dates: start: 20211015
  6. DENOSUMAB [Concomitant]
     Active Substance: DENOSUMAB
     Indication: Prophylaxis
     Dosage: AS NEEDED
     Route: 058
     Dates: start: 20211117, end: 20211117
  7. BENAZEPRIL HYDROCHLORIDE TABLETS [Concomitant]
     Indication: Hypertension
     Route: 048
     Dates: start: 20210101, end: 20211109
  8. MUPIROCIN [Concomitant]
     Active Substance: MUPIROCIN
     Indication: Rash
     Dosage: MODERATE AMOUNT
     Route: 062
     Dates: start: 20211102
  9. DESONIDE [Concomitant]
     Active Substance: DESONIDE
     Indication: Rash
     Dosage: MODERATE AMOUNT
     Route: 062
     Dates: start: 20211106

REACTIONS (2)
  - Hypocalcaemia [Recovered/Resolved]
  - Pleural effusion [Recovered/Resolved]

NARRATIVE: CASE EVENT DATE: 20211122
